FAERS Safety Report 6171965-5 (Version None)
Quarter: 2009Q2

REPORT INFORMATION
  Report Type: 
  Country: None (occurrence: None)
  Receive Date: 20090429
  Receipt Date: 20090420
  Transmission Date: 20091009
  Serious: Yes (Disabling, Other)
  Sender: FDA-Public Use
  Company Number: PHHY2009CL15061

PATIENT
  Age: 73 Year
  Sex: Female

DRUGS (1)
  1. TAREG D [Suspect]
     Indication: HYPERTENSION
     Dosage: ONE TABLET PER DAY
     Route: 048
     Dates: start: 20081108

REACTIONS (2)
  - FALL [None]
  - VERTEBRAL INJURY [None]
